FAERS Safety Report 25936611 (Version 1)
Quarter: 2025Q4

REPORT INFORMATION
  Report Type: Spontaneous
  Country: CA (occurrence: CA)
  Receive Date: 20251017
  Receipt Date: 20251017
  Transmission Date: 20260117
  Serious: Yes (Death, Other)
  Sender: BRISTOL-MYERS SQUIBB COMPANY
  Company Number: CA-BRISTOL-MYERS SQUIBB COMPANY-2025-141739

PATIENT
  Age: 40 Year
  Sex: Female

DRUGS (301)
  1. TRIAMCINOLONE ACETONIDE [Suspect]
     Active Substance: TRIAMCINOLONE ACETONIDE
     Indication: Rheumatoid arthritis
  2. ORENCIA [Suspect]
     Active Substance: ABATACEPT
     Indication: Rheumatoid arthritis
  3. ORENCIA [Suspect]
     Active Substance: ABATACEPT
  4. ORENCIA [Suspect]
     Active Substance: ABATACEPT
  5. ORENCIA [Suspect]
     Active Substance: ABATACEPT
  6. ORENCIA [Suspect]
     Active Substance: ABATACEPT
  7. ORENCIA [Suspect]
     Active Substance: ABATACEPT
     Indication: Rheumatoid arthritis
  8. ORENCIA [Suspect]
     Active Substance: ABATACEPT
     Indication: Rheumatoid arthritis
  9. ORENCIA [Suspect]
     Active Substance: ABATACEPT
  10. ACETAMINOPHEN [Concomitant]
     Active Substance: ACETAMINOPHEN
     Indication: Rheumatoid arthritis
  11. ACETAMINOPHEN [Concomitant]
     Active Substance: ACETAMINOPHEN
  12. ACETAMINOPHEN [Concomitant]
     Active Substance: ACETAMINOPHEN
  13. ACTEMRA [Concomitant]
     Active Substance: TOCILIZUMAB
     Indication: Rheumatoid arthritis
  14. ACTEMRA [Concomitant]
     Active Substance: TOCILIZUMAB
  15. ACTEMRA [Concomitant]
     Active Substance: TOCILIZUMAB
  16. ACTEMRA [Concomitant]
     Active Substance: TOCILIZUMAB
  17. ACTEMRA [Concomitant]
     Active Substance: TOCILIZUMAB
  18. ACTEMRA [Concomitant]
     Active Substance: TOCILIZUMAB
  19. ACTEMRA [Concomitant]
     Active Substance: TOCILIZUMAB
  20. ACTEMRA [Concomitant]
     Active Substance: TOCILIZUMAB
  21. ACTEMRA [Concomitant]
     Active Substance: TOCILIZUMAB
  22. ACTEMRA [Concomitant]
     Active Substance: TOCILIZUMAB
  23. ACTEMRA [Concomitant]
     Active Substance: TOCILIZUMAB
  24. ACTEMRA [Concomitant]
     Active Substance: TOCILIZUMAB
  25. ACTEMRA [Concomitant]
     Active Substance: TOCILIZUMAB
  26. ACTEMRA [Concomitant]
     Active Substance: TOCILIZUMAB
  27. ACTEMRA [Concomitant]
     Active Substance: TOCILIZUMAB
  28. ACTEMRA [Concomitant]
     Active Substance: TOCILIZUMAB
  29. ACTEMRA [Concomitant]
     Active Substance: TOCILIZUMAB
  30. ACTEMRA [Concomitant]
     Active Substance: TOCILIZUMAB
  31. ACTEMRA [Concomitant]
     Active Substance: TOCILIZUMAB
  32. ADALIMUMAB [Concomitant]
     Active Substance: ADALIMUMAB
     Indication: Rheumatoid arthritis
  33. ADALIMUMAB [Concomitant]
     Active Substance: ADALIMUMAB
     Dosage: SUBCUTANEOUS
  34. ADALIMUMAB [Concomitant]
     Active Substance: ADALIMUMAB
  35. AIMOVIG [Concomitant]
     Active Substance: ERENUMAB-AOOE
     Indication: Migraine
  36. ALENDRONIC ACID [Concomitant]
     Active Substance: ALENDRONIC ACID
     Indication: Rheumatoid arthritis
  37. ALENDRONIC ACID [Concomitant]
     Active Substance: ALENDRONIC ACID
  38. ALENDRONIC ACID [Concomitant]
     Active Substance: ALENDRONIC ACID
  39. LEFLUNOMIDE [Concomitant]
     Active Substance: LEFLUNOMIDE
     Indication: Rheumatoid arthritis
  40. LEFLUNOMIDE [Concomitant]
     Active Substance: LEFLUNOMIDE
  41. LEFLUNOMIDE [Concomitant]
     Active Substance: LEFLUNOMIDE
  42. PREDNISONE [Concomitant]
     Active Substance: PREDNISONE
     Indication: Rheumatoid arthritis
  43. PREDNISONE [Concomitant]
     Active Substance: PREDNISONE
  44. PREDNISONE [Concomitant]
     Active Substance: PREDNISONE
  45. PREDNISONE [Concomitant]
     Active Substance: PREDNISONE
  46. PREDNISONE [Concomitant]
     Active Substance: PREDNISONE
  47. PREDNISONE [Concomitant]
     Active Substance: PREDNISONE
  48. PREDNISONE [Concomitant]
     Active Substance: PREDNISONE
  49. APREMILAST [Concomitant]
     Active Substance: APREMILAST
     Indication: Rheumatoid arthritis
  50. APREMILAST [Concomitant]
     Active Substance: APREMILAST
  51. ARAVA [Concomitant]
     Active Substance: LEFLUNOMIDE
     Indication: Rheumatoid arthritis
  52. ARAVA [Concomitant]
     Active Substance: LEFLUNOMIDE
  53. ARAVA [Concomitant]
     Active Substance: LEFLUNOMIDE
  54. ARAVA [Concomitant]
     Active Substance: LEFLUNOMIDE
  55. ATOMOXETINE HYDROCHLORIDE [Concomitant]
     Active Substance: ATOMOXETINE HYDROCHLORIDE
     Indication: Migraine
  56. ATOMOXETINE HYDROCHLORIDE [Concomitant]
     Active Substance: ATOMOXETINE HYDROCHLORIDE
  57. AZATHIOPRINE SODIUM [Concomitant]
     Active Substance: AZATHIOPRINE SODIUM
     Indication: Product used for unknown indication
  58. BERINERT [Concomitant]
     Active Substance: HUMAN C1-ESTERASE INHIBITOR
     Indication: Product used for unknown indication
  59. BOTULINUM TOXIN TYPE A [Concomitant]
     Active Substance: BOTULINUM TOXIN TYPE A
     Indication: Product used for unknown indication
     Dosage: POWDER FOR SOLUTION
  60. BUTRANS [Concomitant]
     Active Substance: BUPRENORPHINE
     Indication: Product used for unknown indication
  61. CALCIUM CARBONATE [Concomitant]
     Active Substance: CALCIUM CARBONATE
     Indication: Product used for unknown indication
  62. CANDESARTAN [Concomitant]
     Active Substance: CANDESARTAN
     Indication: Migraine
  63. CERTOLIZUMAB PEGOL [Concomitant]
     Active Substance: CERTOLIZUMAB PEGOL
     Indication: Product used for unknown indication
  64. CERTOLIZUMAB PEGOL [Concomitant]
     Active Substance: CERTOLIZUMAB PEGOL
  65. CERTOLIZUMAB PEGOL [Concomitant]
     Active Substance: CERTOLIZUMAB PEGOL
  66. CETIRIZINE HYDROCHLORIDE [Concomitant]
     Active Substance: CETIRIZINE HYDROCHLORIDE
     Indication: Product used for unknown indication
  67. CETIRIZINE HYDROCHLORIDE [Concomitant]
     Active Substance: CETIRIZINE HYDROCHLORIDE
  68. CETIRIZINE HYDROCHLORIDE [Concomitant]
     Active Substance: CETIRIZINE HYDROCHLORIDE
  69. CETIRIZINE HYDROCHLORIDE [Concomitant]
     Active Substance: CETIRIZINE HYDROCHLORIDE
  70. CETIRIZINE HYDROCHLORIDE [Concomitant]
     Active Substance: CETIRIZINE HYDROCHLORIDE
  71. CETIRIZINE HYDROCHLORIDE [Concomitant]
     Active Substance: CETIRIZINE HYDROCHLORIDE
  72. CHLORHEXIDINE GLUCONATE [Concomitant]
     Active Substance: CHLORHEXIDINE GLUCONATE
     Indication: Product used for unknown indication
  73. CHOLECALCIFEROL [Concomitant]
     Active Substance: CHOLECALCIFEROL
     Indication: Product used for unknown indication
  74. CIMZIA [Concomitant]
     Active Substance: CERTOLIZUMAB PEGOL
     Indication: Psoriasis
  75. CIMZIA [Concomitant]
     Active Substance: CERTOLIZUMAB PEGOL
     Indication: Rheumatoid arthritis
  76. CIMZIA [Concomitant]
     Active Substance: CERTOLIZUMAB PEGOL
  77. CIMZIA [Concomitant]
     Active Substance: CERTOLIZUMAB PEGOL
  78. CORTISONE ACETATE [Concomitant]
     Active Substance: CORTISONE ACETATE
     Indication: Rheumatoid arthritis
  79. CORTISONE ACETATE [Concomitant]
     Active Substance: CORTISONE ACETATE
  80. CORTISONE ACETATE [Concomitant]
     Active Substance: CORTISONE ACETATE
  81. COSENTYX [Concomitant]
     Active Substance: SECUKINUMAB
     Indication: Rheumatoid arthritis
  82. COSENTYX [Concomitant]
     Active Substance: SECUKINUMAB
     Indication: Psoriatic arthropathy
  83. COSENTYX [Concomitant]
     Active Substance: SECUKINUMAB
  84. DESOXIMETASONE [Concomitant]
     Active Substance: DESOXIMETASONE
     Indication: Rheumatoid arthritis
  85. DESOXIMETASONE [Concomitant]
     Active Substance: DESOXIMETASONE
  86. DESOXIMETASONE [Concomitant]
     Active Substance: DESOXIMETASONE
  87. DESOXIMETASONE [Concomitant]
     Active Substance: DESOXIMETASONE
  88. DESOXIMETASONE [Concomitant]
     Active Substance: DESOXIMETASONE
  89. DESOXIMETASONE [Concomitant]
     Active Substance: DESOXIMETASONE
  90. DICLOFENAC DIETHYLAMINE [Concomitant]
     Active Substance: DICLOFENAC DIETHYLAMINE
     Indication: Product used for unknown indication
  91. DICLOFENAC SODIUM [Concomitant]
     Active Substance: DICLOFENAC SODIUM
     Indication: Product used for unknown indication
  92. DICLOFENAC SODIUM [Concomitant]
     Active Substance: DICLOFENAC SODIUM
  93. DOMPERIDONE MALEATE [Concomitant]
     Active Substance: DOMPERIDONE MALEATE
     Indication: Product used for unknown indication
  94. ENBREL [Concomitant]
     Active Substance: ETANERCEPT
     Indication: Rheumatoid arthritis
  95. ENBREL [Concomitant]
     Active Substance: ETANERCEPT
  96. ENBREL [Concomitant]
     Active Substance: ETANERCEPT
  97. ENBREL [Concomitant]
     Active Substance: ETANERCEPT
  98. ENBREL [Concomitant]
     Active Substance: ETANERCEPT
  99. ENBREL [Concomitant]
     Active Substance: ETANERCEPT
  100. ERELZI [Concomitant]
     Active Substance: ETANERCEPT-SZZS
     Indication: Rheumatoid arthritis
  101. ERELZI [Concomitant]
     Active Substance: ETANERCEPT-SZZS
  102. FLUMETHASONE [Concomitant]
     Active Substance: FLUMETHASONE
     Indication: Product used for unknown indication
  103. FLUMETHASONE PIVALATE [Concomitant]
     Active Substance: FLUMETHASONE PIVALATE
     Indication: Product used for unknown indication
  104. FOLIC ACID [Concomitant]
     Active Substance: FOLIC ACID
     Indication: Rheumatoid arthritis
  105. FOLIC ACID [Concomitant]
     Active Substance: FOLIC ACID
  106. FOLIC ACID [Concomitant]
     Active Substance: FOLIC ACID
  107. FOLIC ACID [Concomitant]
     Active Substance: FOLIC ACID
  108. FOLIC ACID [Concomitant]
     Active Substance: FOLIC ACID
  109. FOLIC ACID [Concomitant]
     Active Substance: FOLIC ACID
  110. FOLIC ACID [Concomitant]
     Active Substance: FOLIC ACID
  111. FOLIC ACID [Concomitant]
     Active Substance: FOLIC ACID
  112. FOLIC ACID [Concomitant]
     Active Substance: FOLIC ACID
  113. FOLIC ACID [Concomitant]
     Active Substance: FOLIC ACID
  114. FOLIC ACID [Concomitant]
     Active Substance: FOLIC ACID
  115. FOLIC ACID [Concomitant]
     Active Substance: FOLIC ACID
  116. FOLIC ACID [Concomitant]
     Active Substance: FOLIC ACID
  117. FOSAMAX [Concomitant]
     Active Substance: ALENDRONATE SODIUM
     Indication: Rheumatoid arthritis
  118. FOSAMAX [Concomitant]
     Active Substance: ALENDRONATE SODIUM
  119. FOSAMAX [Concomitant]
     Active Substance: ALENDRONATE SODIUM
  120. FOSAMAX [Concomitant]
     Active Substance: ALENDRONATE SODIUM
  121. GOLD [Concomitant]
     Active Substance: GOLD
     Indication: Product used for unknown indication
  122. GOLD SODIUM THIOMALATE [Concomitant]
     Active Substance: GOLD SODIUM THIOMALATE
     Indication: Product used for unknown indication
  123. GOLIMUMAB [Concomitant]
     Active Substance: GOLIMUMAB
     Indication: Rheumatoid arthritis
  124. GOLIMUMAB [Concomitant]
     Active Substance: GOLIMUMAB
     Indication: Prostatic specific antigen
  125. GOLIMUMAB [Concomitant]
     Active Substance: GOLIMUMAB
  126. GOLIMUMAB [Concomitant]
     Active Substance: GOLIMUMAB
  127. HUMIRA [Concomitant]
     Active Substance: ADALIMUMAB
     Indication: Rheumatoid arthritis
  128. HUMIRA [Concomitant]
     Active Substance: ADALIMUMAB
  129. HUMIRA [Concomitant]
     Active Substance: ADALIMUMAB
  130. HUMIRA [Concomitant]
     Active Substance: ADALIMUMAB
  131. HUMIRA [Concomitant]
     Active Substance: ADALIMUMAB
  132. HYDROCORTISONE [Concomitant]
     Active Substance: HYDROCORTISONE
     Indication: Product used for unknown indication
  133. HYDROXYCHLOROQUINE [Concomitant]
     Active Substance: HYDROXYCHLOROQUINE
     Indication: Rheumatoid arthritis
  134. HYDROXYCHLOROQUINE [Concomitant]
     Active Substance: HYDROXYCHLOROQUINE
  135. HYDROXYCHLOROQUINE [Concomitant]
     Active Substance: HYDROXYCHLOROQUINE
  136. HYDROXYCHLOROQUINE [Concomitant]
     Active Substance: HYDROXYCHLOROQUINE
  137. HYDROXYCHLOROQUINE [Concomitant]
     Active Substance: HYDROXYCHLOROQUINE
  138. HYDROXYCHLOROQUINE [Concomitant]
     Active Substance: HYDROXYCHLOROQUINE
  139. HYDROXYCHLOROQUINE [Concomitant]
     Active Substance: HYDROXYCHLOROQUINE
  140. HYDROXYCHLOROQUINE [Concomitant]
     Active Substance: HYDROXYCHLOROQUINE
  141. HYDROXYCHLOROQUINE SULFATE [Concomitant]
     Active Substance: HYDROXYCHLOROQUINE SULFATE
     Indication: Rheumatoid arthritis
  142. HYDROXYCHLOROQUINE SULFATE [Concomitant]
     Active Substance: HYDROXYCHLOROQUINE SULFATE
  143. HYDROXYCHLOROQUINE SULFATE [Concomitant]
     Active Substance: HYDROXYCHLOROQUINE SULFATE
  144. HYDROXYCHLOROQUINE SULFATE [Concomitant]
     Active Substance: HYDROXYCHLOROQUINE SULFATE
  145. HYDROXYCHLOROQUINE SULFATE [Concomitant]
     Active Substance: HYDROXYCHLOROQUINE SULFATE
  146. INFLIXIMAB [Concomitant]
     Active Substance: INFLIXIMAB
     Indication: Rheumatoid arthritis
  147. INFLIXIMAB [Concomitant]
     Active Substance: INFLIXIMAB
  148. INFLIXIMAB [Concomitant]
     Active Substance: INFLIXIMAB
  149. LAMICTAL [Concomitant]
     Active Substance: LAMOTRIGINE
     Indication: Product used for unknown indication
  150. LAMICTAL [Concomitant]
     Active Substance: LAMOTRIGINE
  151. LEFLUNOMIDE [Concomitant]
     Active Substance: LEFLUNOMIDE
     Indication: Rheumatoid arthritis
  152. LEFLUNOMIDE [Concomitant]
     Active Substance: LEFLUNOMIDE
  153. LEFLUNOMIDE [Concomitant]
     Active Substance: LEFLUNOMIDE
  154. LEFLUNOMIDE [Concomitant]
     Active Substance: LEFLUNOMIDE
  155. LEFLUNOMIDE [Concomitant]
     Active Substance: LEFLUNOMIDE
  156. LEFLUNOMIDE [Concomitant]
     Active Substance: LEFLUNOMIDE
  157. METFORMIN [Concomitant]
     Active Substance: METFORMIN HYDROCHLORIDE
     Indication: Product used for unknown indication
  158. METHOTREXATE [Concomitant]
     Active Substance: METHOTREXATE
     Indication: Rheumatoid arthritis
  159. METHOTREXATE [Concomitant]
     Active Substance: METHOTREXATE
  160. METHOTREXATE [Concomitant]
     Active Substance: METHOTREXATE
  161. METHOTREXATE [Concomitant]
     Active Substance: METHOTREXATE
  162. METHOTREXATE [Concomitant]
     Active Substance: METHOTREXATE
  163. METHOTREXATE [Concomitant]
     Active Substance: METHOTREXATE
  164. METHOTREXATE [Concomitant]
     Active Substance: METHOTREXATE
  165. METHOTREXATE [Concomitant]
     Active Substance: METHOTREXATE
  166. METHOTREXATE [Concomitant]
     Active Substance: METHOTREXATE
  167. METHOTREXATE [Concomitant]
     Active Substance: METHOTREXATE
  168. METHOTREXATE [Concomitant]
     Active Substance: METHOTREXATE
  169. METHOTREXATE [Concomitant]
     Active Substance: METHOTREXATE
  170. METHOTREXATE [Concomitant]
     Active Substance: METHOTREXATE
  171. METHOTREXATE [Concomitant]
     Active Substance: METHOTREXATE
  172. METHOTREXATE [Concomitant]
     Active Substance: METHOTREXATE
  173. METHOTREXATE [Concomitant]
     Active Substance: METHOTREXATE
  174. METHOTREXATE [Concomitant]
     Active Substance: METHOTREXATE
  175. METHOTREXATE [Concomitant]
     Active Substance: METHOTREXATE
  176. METHOTREXATE [Concomitant]
     Active Substance: METHOTREXATE
  177. METHOTREXATE [Concomitant]
     Active Substance: METHOTREXATE
  178. METHOTREXATE [Concomitant]
     Active Substance: METHOTREXATE
  179. METHOTREXATE [Concomitant]
     Active Substance: METHOTREXATE
  180. METHOTREXATE [Concomitant]
     Active Substance: METHOTREXATE
  181. METHOTREXATE [Concomitant]
     Active Substance: METHOTREXATE
  182. METHOTREXATE [Concomitant]
     Active Substance: METHOTREXATE
  183. METHOTREXATE [Concomitant]
     Active Substance: METHOTREXATE
  184. METHOTREXATE [Concomitant]
     Active Substance: METHOTREXATE
  185. METHOTREXATE [Concomitant]
     Active Substance: METHOTREXATE
  186. METHOTREXATE [Concomitant]
     Active Substance: METHOTREXATE
  187. METHOTREXATE [Concomitant]
     Active Substance: METHOTREXATE
  188. METHOTREXATE [Concomitant]
     Active Substance: METHOTREXATE
  189. METHOTREXATE [Concomitant]
     Active Substance: METHOTREXATE
  190. METHOTREXATE [Concomitant]
     Active Substance: METHOTREXATE
  191. METHOTREXATE [Concomitant]
     Active Substance: METHOTREXATE
  192. METHOTREXATE [Concomitant]
     Active Substance: METHOTREXATE
  193. METHYLPREDNISOLONE [Concomitant]
     Active Substance: METHYLPREDNISOLONE
     Indication: Product used for unknown indication
  194. METHYLPREDNISOLONE SODIUM SUCCINATE [Concomitant]
     Active Substance: METHYLPREDNISOLONE SODIUM SUCCINATE
     Indication: Product used for unknown indication
  195. MINOCYCLINE [Concomitant]
     Active Substance: MINOCYCLINE HYDROCHLORIDE
     Indication: Product used for unknown indication
  196. MINOCYCLINE HYDROCHLORIDE [Concomitant]
     Active Substance: MINOCYCLINE HYDROCHLORIDE
     Indication: Product used for unknown indication
  197. MYOCHRYSINE [Concomitant]
     Active Substance: GOLD SODIUM THIOMALATE
     Indication: Rheumatoid arthritis
  198. MYRBETRIQ [Concomitant]
     Active Substance: MIRABEGRON
     Indication: Product used for unknown indication
     Dosage: EXTENDED RELEASE
  199. MYRBETRIQ [Concomitant]
     Active Substance: MIRABEGRON
  200. NAPROXEN [Concomitant]
     Active Substance: NAPROXEN
     Indication: Product used for unknown indication
  201. NAPROXEN SODIUM [Concomitant]
     Active Substance: NAPROXEN SODIUM
     Indication: Rheumatoid arthritis
  202. NUCALA [Concomitant]
     Active Substance: MEPOLIZUMAB
     Indication: Product used for unknown indication
  203. OXYCODONE [Concomitant]
     Active Substance: OXYCODONE
     Indication: Product used for unknown indication
  204. OXYCODONE TEREPHTHALATE [Concomitant]
     Active Substance: OXYCODONE TEREPHTHALATE
     Indication: Product used for unknown indication
  205. PHENYLEPHRINE HYDROCHLORIDE [Concomitant]
     Active Substance: PHENYLEPHRINE HYDROCHLORIDE
     Indication: Rheumatoid arthritis
  206. PHTHALYLSULFATHIAZOLE [Concomitant]
     Active Substance: PHTHALYLSULFATHIAZOLE
     Indication: Rheumatoid arthritis
  207. PHTHALYLSULFATHIAZOLE [Concomitant]
     Active Substance: PHTHALYLSULFATHIAZOLE
  208. PHTHALYLSULFATHIAZOLE [Concomitant]
     Active Substance: PHTHALYLSULFATHIAZOLE
  209. PHTHALYLSULFATHIAZOLE [Concomitant]
     Active Substance: PHTHALYLSULFATHIAZOLE
  210. PHTHALYLSULFATHIAZOLE [Concomitant]
     Active Substance: PHTHALYLSULFATHIAZOLE
  211. PHTHALYLSULFATHIAZOLE [Concomitant]
     Active Substance: PHTHALYLSULFATHIAZOLE
  212. PREDNISONE [Concomitant]
     Active Substance: PREDNISONE
     Indication: Rheumatoid arthritis
  213. PREDNISONE [Concomitant]
     Active Substance: PREDNISONE
  214. PREDNISONE [Concomitant]
     Active Substance: PREDNISONE
  215. PREDNISONE [Concomitant]
     Active Substance: PREDNISONE
  216. PREDNISONE [Concomitant]
     Active Substance: PREDNISONE
  217. PREDNISONE [Concomitant]
     Active Substance: PREDNISONE
  218. PREDNISONE [Concomitant]
     Active Substance: PREDNISONE
  219. PREDNISONE [Concomitant]
     Active Substance: PREDNISONE
  220. PREDNISONE [Concomitant]
     Active Substance: PREDNISONE
  221. PREDNISONE [Concomitant]
     Active Substance: PREDNISONE
  222. PSEUDOEPHEDRINE HYDROCHLORIDE [Concomitant]
     Active Substance: PSEUDOEPHEDRINE HYDROCHLORIDE
     Indication: Rheumatoid arthritis
  223. PSEUDOEPHEDRINE HYDROCHLORIDE [Concomitant]
     Active Substance: PSEUDOEPHEDRINE HYDROCHLORIDE
  224. PSEUDOEPHEDRINE HYDROCHLORIDE [Concomitant]
     Active Substance: PSEUDOEPHEDRINE HYDROCHLORIDE
  225. PSEUDOEPHEDRINE HYDROCHLORIDE [Concomitant]
     Active Substance: PSEUDOEPHEDRINE HYDROCHLORIDE
  226. RAMIPRIL [Concomitant]
     Active Substance: RAMIPRIL
     Indication: Rheumatoid arthritis
  227. RAMIPRIL [Concomitant]
     Active Substance: RAMIPRIL
  228. RAMIPRIL [Concomitant]
     Active Substance: RAMIPRIL
  229. RANITIDINE [Concomitant]
     Active Substance: RANITIDINE
     Indication: Product used for unknown indication
  230. CETIRIZINE HYDROCHLORIDE\PSEUDOEPHEDRINE HYDROCHLORIDE [Concomitant]
     Active Substance: CETIRIZINE HYDROCHLORIDE\PSEUDOEPHEDRINE HYDROCHLORIDE
     Indication: Rheumatoid arthritis
  231. CETIRIZINE HYDROCHLORIDE\PSEUDOEPHEDRINE HYDROCHLORIDE [Concomitant]
     Active Substance: CETIRIZINE HYDROCHLORIDE\PSEUDOEPHEDRINE HYDROCHLORIDE
     Dosage: EXTENDED-RELEASE TABLET
  232. CETIRIZINE HYDROCHLORIDE\PSEUDOEPHEDRINE HYDROCHLORIDE [Concomitant]
     Active Substance: CETIRIZINE HYDROCHLORIDE\PSEUDOEPHEDRINE HYDROCHLORIDE
  233. REMICADE [Concomitant]
     Active Substance: INFLIXIMAB
     Indication: Rheumatoid arthritis
  234. REMICADE [Concomitant]
     Active Substance: INFLIXIMAB
  235. REMICADE [Concomitant]
     Active Substance: INFLIXIMAB
  236. REMICADE [Concomitant]
     Active Substance: INFLIXIMAB
  237. REMICADE [Concomitant]
     Active Substance: INFLIXIMAB
     Dosage: POWDER FOR SOLUTION INTRAVENOUS
  238. REMICADE [Concomitant]
     Active Substance: INFLIXIMAB
  239. RITUXIMAB [Concomitant]
     Active Substance: RITUXIMAB
     Indication: Rheumatoid arthritis
     Dosage: POWDER FOR SOLUTION INTRAVENOUS
  240. RITUXIMAB [Concomitant]
     Active Substance: RITUXIMAB
     Dosage: POWDER FOR SOLUTION INTRAVENOUS
  241. RITUXIMAB [Concomitant]
     Active Substance: RITUXIMAB
     Dosage: POWDER FOR SOLUTION INTRAVENOUS
  242. RITUXIMAB [Concomitant]
     Active Substance: RITUXIMAB
     Dosage: POWDER FOR SOLUTION INTRAVENOUS
  243. RITUXIMAB [Concomitant]
     Active Substance: RITUXIMAB
     Dosage: POWDER FOR SOLUTION INTRAVENOUS
  244. RITUXIMAB [Concomitant]
     Active Substance: RITUXIMAB
     Dosage: POWDER FOR SOLUTION INTRAVENOUS
  245. RITUXIMAB [Concomitant]
     Active Substance: RITUXIMAB
     Dosage: POWDER FOR SOLUTION INTRAVENOUS
  246. RITUXIMAB [Concomitant]
     Active Substance: RITUXIMAB
     Dosage: POWDER FOR SOLUTION INTRAVENOUS
  247. RITUXIMAB [Concomitant]
     Active Substance: RITUXIMAB
     Dosage: POWDER FOR SOLUTION INTRAVENOUS
  248. RITUXIMAB [Concomitant]
     Active Substance: RITUXIMAB
     Dosage: POWDER FOR SOLUTION INTRAVENOUS
  249. SULFASALAZINE [Concomitant]
     Active Substance: SULFASALAZINE
     Indication: Rheumatoid arthritis
  250. SIMPONI [Concomitant]
     Active Substance: GOLIMUMAB
     Indication: Rheumatoid arthritis
  251. SIMPONI [Concomitant]
     Active Substance: GOLIMUMAB
  252. SIMPONI [Concomitant]
     Active Substance: GOLIMUMAB
  253. SIRUKUMAB [Concomitant]
     Active Substance: SIRUKUMAB
     Indication: Product used for unknown indication
  254. GOLD SODIUM THIOMALATE [Concomitant]
     Active Substance: GOLD SODIUM THIOMALATE
     Indication: Product used for unknown indication
  255. STELARA [Concomitant]
     Active Substance: USTEKINUMAB
     Indication: Rheumatoid arthritis
     Dosage: SOLUTION SUBCUTANEOUS
  256. STELARA [Concomitant]
     Active Substance: USTEKINUMAB
  257. SULFASALAZINE [Concomitant]
     Active Substance: SULFASALAZINE
     Indication: Rheumatoid arthritis
  258. SULFASALAZINE [Concomitant]
     Active Substance: SULFASALAZINE
  259. SULFASALAZINE [Concomitant]
     Active Substance: SULFASALAZINE
  260. SULFASALAZINE [Concomitant]
     Active Substance: SULFASALAZINE
  261. SULFASALAZINE [Concomitant]
     Active Substance: SULFASALAZINE
  262. SULFASALAZINE [Concomitant]
     Active Substance: SULFASALAZINE
  263. SULFASALAZINE [Concomitant]
     Active Substance: SULFASALAZINE
  264. SULFASALAZINE [Concomitant]
     Active Substance: SULFASALAZINE
  265. SULFASALAZINE [Concomitant]
     Active Substance: SULFASALAZINE
  266. SULFASALAZINE [Concomitant]
     Active Substance: SULFASALAZINE
  267. SULFASALAZINE [Concomitant]
     Active Substance: SULFASALAZINE
  268. SULFASALAZINE [Concomitant]
     Active Substance: SULFASALAZINE
  269. SULFASALAZINE [Concomitant]
     Active Substance: SULFASALAZINE
  270. SULFASALAZINE [Concomitant]
     Active Substance: SULFASALAZINE
  271. SULFASALAZINE [Concomitant]
     Active Substance: SULFASALAZINE
  272. SULFASALAZINE [Concomitant]
     Active Substance: SULFASALAZINE
  273. SULFASALAZINE [Concomitant]
     Active Substance: SULFASALAZINE
  274. SULFASALAZINE [Concomitant]
     Active Substance: SULFASALAZINE
  275. SULFASALAZINE [Concomitant]
     Active Substance: SULFASALAZINE
  276. TETRACYCLINE HYDROCHLORIDE [Concomitant]
     Active Substance: TETRACYCLINE HYDROCHLORIDE
     Indication: Rheumatoid arthritis
     Dosage: POWDER FOR SOLUTION ORAL
  277. TOCILIZUMAB [Concomitant]
     Active Substance: TOCILIZUMAB
     Indication: Rheumatoid arthritis
  278. TOCILIZUMAB [Concomitant]
     Active Substance: TOCILIZUMAB
  279. TOCILIZUMAB [Concomitant]
     Active Substance: TOCILIZUMAB
  280. TOCILIZUMAB [Concomitant]
     Active Substance: TOCILIZUMAB
  281. TOCILIZUMAB [Concomitant]
     Active Substance: TOCILIZUMAB
  282. TOCILIZUMAB [Concomitant]
     Active Substance: TOCILIZUMAB
  283. TOCILIZUMAB [Concomitant]
     Active Substance: TOCILIZUMAB
  284. TOFACITINIB [Concomitant]
     Active Substance: TOFACITINIB
     Indication: Rheumatoid arthritis
  285. TOFACITINIB [Concomitant]
     Active Substance: TOFACITINIB
  286. TOFACITINIB CITRATE [Concomitant]
     Active Substance: TOFACITINIB CITRATE
     Indication: Rheumatoid arthritis
  287. TOFACITINIB CITRATE [Concomitant]
     Active Substance: TOFACITINIB CITRATE
  288. TOPIRAMATE [Concomitant]
     Active Substance: TOPIRAMATE
     Indication: Rheumatoid arthritis
  289. TOPIRAMATE [Concomitant]
     Active Substance: TOPIRAMATE
  290. TOPIRAMATE [Concomitant]
     Active Substance: TOPIRAMATE
  291. TRAMADOL HYDROCHLORIDE [Concomitant]
     Active Substance: TRAMADOL HYDROCHLORIDE
     Indication: Product used for unknown indication
  292. USTEKINUMAB [Concomitant]
     Active Substance: USTEKINUMAB
     Indication: Product used for unknown indication
  293. USTEKINUMAB [Concomitant]
     Active Substance: USTEKINUMAB
  294. USTEKINUMAB [Concomitant]
     Active Substance: USTEKINUMAB
  295. VITAMIN C [Concomitant]
     Active Substance: ASCORBIC ACID
     Indication: Product used for unknown indication
  296. XELJANZ [Concomitant]
     Active Substance: TOFACITINIB CITRATE
     Indication: Rheumatoid arthritis
  297. XELJANZ [Concomitant]
     Active Substance: TOFACITINIB CITRATE
  298. XELJANZ [Concomitant]
     Active Substance: TOFACITINIB CITRATE
  299. XELJANZ [Concomitant]
     Active Substance: TOFACITINIB CITRATE
  300. XELJANZ [Concomitant]
     Active Substance: TOFACITINIB CITRATE
  301. XELJANZ [Concomitant]
     Active Substance: TOFACITINIB CITRATE

REACTIONS (1)
  - Death [Fatal]
